FAERS Safety Report 20712438 (Version 1)
Quarter: 2022Q2

REPORT INFORMATION
  Report Type: Spontaneous
  Country: IN (occurrence: IN)
  Receive Date: 20220415
  Receipt Date: 20220415
  Transmission Date: 20220721
  Serious: Yes (Other)
  Sender: FDA-Public Use
  Company Number: IN-SA-2022SA125994

PATIENT

DRUGS (7)
  1. AMIKACIN [Suspect]
     Active Substance: AMIKACIN
     Indication: Peritoneal tuberculosis
     Dosage: 15 MG/KG Q24H, 5 TIMES/WEEK (RELA)
     Route: 042
  2. ETHAMBUTOL [Suspect]
     Active Substance: ETHAMBUTOL HYDROCHLORIDE
     Indication: Peritoneal tuberculosis
     Dosage: 15 MG/KG, Q24HR (RELA)
  3. ETHAMBUTOL [Suspect]
     Active Substance: ETHAMBUTOL HYDROCHLORIDE
     Dosage: 15 MG/KG, Q24HR (RLE)
  4. RIFAMPIN [Suspect]
     Active Substance: RIFAMPIN
     Indication: Peritoneal tuberculosis
     Dosage: 10 MG/KG, Q24HR (RELA)
  5. RIFAMPIN [Suspect]
     Active Substance: RIFAMPIN
     Dosage: 10 MG/KG, Q24HR (RLE)
  6. LEVOFLOXACIN [Suspect]
     Active Substance: LEVOFLOXACIN
     Indication: Peritoneal tuberculosis
     Dosage: 10-15 MG/KG Q24HR (RELA)
  7. LEVOFLOXACIN [Suspect]
     Active Substance: LEVOFLOXACIN
     Dosage: 10-15 MG/KG Q24HR

REACTIONS (2)
  - Autoimmune hepatitis [Unknown]
  - Hypertransaminasaemia [Unknown]
